FAERS Safety Report 7581061-8 (Version None)
Quarter: 2011Q2

REPORT INFORMATION
  Report Type: 
  Country: None (occurrence: None)
  Receive Date: 20110622
  Receipt Date: 20110607
  Transmission Date: 20111010
  Serious: Yes (Hospitalization)
  Sender: FDA-Public Use
  Company Number: 2011MA006900

PATIENT
  Age: 42 Year

DRUGS (2)
  1. MORPHINE [Concomitant]
  2. CLONIDINE HYDROCHLORIDE [Suspect]
     Indication: PAIN

REACTIONS (4)
  - HYPERAESTHESIA [None]
  - AGITATION [None]
  - POLYURIA [None]
  - DIARRHOEA [None]
